FAERS Safety Report 16764133 (Version 2)
Quarter: 2019Q4

REPORT INFORMATION
  Report Type: Report from Study
  Country: RU (occurrence: RU)
  Receive Date: 20190902
  Receipt Date: 20191014
  Transmission Date: 20200122
  Serious: No
  Sender: FDA-Public Use
  Company Number: RU-ASTRAZENECA-2019SF22677

PATIENT
  Age: 46 Year
  Sex: Female
  Weight: 112 kg

DRUGS (5)
  1. LISINOPRIL. [Concomitant]
     Active Substance: LISINOPRIL
  2. INSULIN [Concomitant]
     Active Substance: INSULIN NOS
  3. AMLODIPINE [Concomitant]
     Active Substance: AMLODIPINE BESYLATE
  4. BISOPROLOL [Concomitant]
     Active Substance: BISOPROLOL
  5. FORXIGA [Suspect]
     Active Substance: DAPAGLIFLOZIN
     Indication: TYPE 2 DIABETES MELLITUS
     Route: 048
     Dates: start: 201812

REACTIONS (11)
  - Dysuria [Recovering/Resolving]
  - Genital erosion [Recovering/Resolving]
  - Dry mouth [Recovered/Resolved]
  - Haemoglobin increased [Unknown]
  - Therapeutic response unexpected [Not Recovered/Not Resolved]
  - Blood glucose increased [Unknown]
  - Genital tract inflammation [Recovering/Resolving]
  - Genital burning sensation [Recovering/Resolving]
  - Polydipsia [Unknown]
  - Abdominal pain lower [Recovering/Resolving]
  - Pruritus genital [Recovering/Resolving]

NARRATIVE: CASE EVENT DATE: 2019
